FAERS Safety Report 11385947 (Version 2)
Quarter: 2015Q3

REPORT INFORMATION
  Report Type: Spontaneous
  Country: NL (occurrence: NL)
  Receive Date: 20150817
  Receipt Date: 20150908
  Transmission Date: 20151125
  Serious: Yes (Other)
  Sender: FDA-Public Use
  Company Number: NL-TEVA-586220ISR

PATIENT
  Age: 17 Year
  Sex: Female

DRUGS (1)
  1. RISPERIDONE. [Suspect]
     Active Substance: RISPERIDONE
     Route: 065

REACTIONS (5)
  - Intracranial pressure increased [Recovering/Resolving]
  - Diplopia [Recovering/Resolving]
  - Blindness [Recovering/Resolving]
  - Headache [Recovering/Resolving]
  - Obesity [Recovering/Resolving]
